FAERS Safety Report 22374517 (Version 3)
Quarter: 2023Q4

REPORT INFORMATION
  Report Type: Spontaneous
  Country: US (occurrence: US)
  Receive Date: 20230526
  Receipt Date: 20231113
  Transmission Date: 20240109
  Serious: Yes (Other)
  Sender: FDA-Public Use
  Company Number: US-BRISTOL-MYERS SQUIBB COMPANY-2023-072189

PATIENT
  Age: 84 Year
  Sex: Male
  Weight: 71.67 kg

DRUGS (1)
  1. REVLIMID [Suspect]
     Active Substance: LENALIDOMIDE
     Indication: Plasma cell myeloma
     Dosage: 21D ON 14D OFF
     Route: 048

REACTIONS (7)
  - Ageusia [Recovering/Resolving]
  - Hallucination [Unknown]
  - Off label use [Unknown]
  - Dysgeusia [Unknown]
  - Fluid retention [Unknown]
  - Dizziness [Recovering/Resolving]
  - Taste disorder [Recovering/Resolving]
